FAERS Safety Report 4766967-7 (Version None)
Quarter: 2005Q3

REPORT INFORMATION
  Report Type: 
  Country: None (occurrence: None)
  Receive Date: 20050908
  Receipt Date: 20050823
  Transmission Date: 20060218
  Serious: Yes (Hospitalization, Other)
  Sender: FDA-Public Use
  Company Number: 2005JP001573

PATIENT
  Age: 13 Year
  Sex: Male
  Weight: 20 kg

DRUGS (2)
  1. PROGRAF [Suspect]
     Indication: LIVER TRANSPLANT
  2. METHYLPREDNISOLONE [Concomitant]

REACTIONS (9)
  - ABSCESS [None]
  - CYTOMEGALOVIRUS INFECTION [None]
  - HEPATIC INFARCTION [None]
  - HYPERGLYCAEMIA [None]
  - LUNG INFECTION PSEUDOMONAL [None]
  - SEPSIS [None]
  - SPLENIC VEIN THROMBOSIS [None]
  - THROMBOSIS [None]
  - VIRAL INFECTION [None]
